FAERS Safety Report 6355660-5 (Version None)
Quarter: 2009Q3

REPORT INFORMATION
  Report Type: 
  Country: None (occurrence: None)
  Receive Date: 20090910
  Receipt Date: 20090827
  Transmission Date: 20100115
  Serious: Yes (Other)
  Sender: FDA-Public Use
  Company Number: ADR18882009

PATIENT
  Age: 40 Year
  Sex: Male

DRUGS (8)
  1. RISPERIDONE [Suspect]
  2. ABILIFY (15MG - 1 DAY) [Concomitant]
  3. DULOXETINE HYDROCHLORIDE [Concomitant]
  4. VALPROATE SODIUM [Concomitant]
  5. ELEXOR (225MG - 1/1DAY) [Concomitant]
  6. LITHIUM (600MG - 1/1DAY) [Concomitant]
  7. MIRTAZAPINE [Concomitant]
  8. QUETIAPINE FUMARATE [Concomitant]

REACTIONS (5)
  - HYPOTHYROIDISM [None]
  - LIVER FUNCTION TEST ABNORMAL [None]
  - METABOLIC SYNDROME [None]
  - OBESITY [None]
  - TYPE 2 DIABETES MELLITUS [None]
